FAERS Safety Report 10084736 (Version 1)
Quarter: 2014Q2

REPORT INFORMATION
  Report Type: Spontaneous
  Country: US (occurrence: None)
  Receive Date: 20140414
  Receipt Date: 20140414
  Transmission Date: 20141212
  Serious: Yes (Other)
  Sender: FDA-Public Use
  Company Number: 201312025

PATIENT
  Age: 34 Year
  Sex: Male
  Weight: 130.18 kg

DRUGS (4)
  1. TESTOPEL [Suspect]
     Indication: HYPOGONADISM
     Dosage: 10 PELLETS
     Route: 058
     Dates: start: 2010
  2. ETODOLAC [Concomitant]
  3. LEVSIN [Concomitant]
  4. MULTIVITAMIN [Concomitant]

REACTIONS (6)
  - Mental disorder [None]
  - Irritability [None]
  - Mood swings [None]
  - Anger [None]
  - Anxiety [None]
  - Panic attack [None]
